FAERS Safety Report 4787653-3 (Version None)
Quarter: 2005Q3

REPORT INFORMATION
  Report Type: 
  Country: None (occurrence: None)
  Receive Date: 20050926
  Receipt Date: 20050815
  Transmission Date: 20060218
  Serious: No
  Sender: FDA-Public Use
  Company Number: 216970

PATIENT
  Sex: Male

DRUGS (3)
  1. AVASTIN [Suspect]
     Indication: NON-SMALL CELL LUNG CANCER
     Dates: start: 20050301
  2. CARBOPLATIN [Concomitant]
  3. GEMCITABINE (GEMCITABINE HYDROCHLORIDE) [Concomitant]

REACTIONS (2)
  - BLOOD PRESSURE INCREASED [None]
  - IMPAIRED HEALING [None]
